FAERS Safety Report 10487893 (Version 6)
Quarter: 2015Q2

REPORT INFORMATION
  Report Type: Report from Study
  Country: CA (occurrence: CA)
  Receive Date: 20141001
  Receipt Date: 20150408
  Transmission Date: 20150821
  Serious: Yes (Life-Threatening, Other)
  Sender: FDA-Public Use
  Company Number: CA-CELGENE-028-10004-14091133

PATIENT
  Age: 40 Year
  Sex: Female
  Weight: 109.3 kg

DRUGS (6)
  1. CC-10004 [Suspect]
     Active Substance: APREMILAST
     Indication: PSORIASIS
     Route: 048
     Dates: start: 20110301, end: 20110914
  2. MIRENA [Concomitant]
     Active Substance: LEVONORGESTREL
     Indication: ORAL CONTRACEPTION
     Route: 015
     Dates: start: 20140218
  3. CC-10004 [Suspect]
     Active Substance: APREMILAST
     Route: 048
     Dates: start: 20120301, end: 20140903
  4. CETIRIZINE [Concomitant]
     Active Substance: CETIRIZINE HYDROCHLORIDE
     Indication: SEASONAL ALLERGY
     Route: 065
     Dates: start: 201405
  5. CIPRALEX [Concomitant]
     Active Substance: ESCITALOPRAM OXALATE
     Indication: ANXIETY
     Route: 048
     Dates: start: 20100824
  6. PATADAY [Concomitant]
     Active Substance: OLOPATADINE HYDROCHLORIDE
     Indication: SEASONAL ALLERGY
     Dosage: 1 DROPS
     Route: 047
     Dates: start: 20140517

REACTIONS (1)
  - Papillary thyroid cancer [Recovered/Resolved]

NARRATIVE: CASE EVENT DATE: 20130809
